FAERS Safety Report 12639017 (Version 1)
Quarter: 2016Q3

REPORT INFORMATION
  Report Type: Spontaneous
  Country: VE (occurrence: VE)
  Receive Date: 20160809
  Receipt Date: 20160809
  Transmission Date: 20161109
  Serious: Yes (Other)
  Sender: FDA-Public Use
  Company Number: PHHY2016VE108678

PATIENT
  Sex: Female

DRUGS (3)
  1. STALEVO [Suspect]
     Active Substance: CARBIDOPA\ENTACAPONE\LEVODOPA
     Indication: PARKINSON^S DISEASE
     Dosage: 300 MG, QD (STRENGTH: 150 MG, 2 TABLETS A DAY)
     Route: 048
  2. STALEVO [Suspect]
     Active Substance: CARBIDOPA\ENTACAPONE\LEVODOPA
     Dosage: 300 MG, QD (STRENGTH: 100 MG, 3 TABLETS A DAY)
     Route: 048
  3. MIRAPEX [Concomitant]
     Active Substance: PRAMIPEXOLE DIHYDROCHLORIDE
     Indication: PARKINSON^S DISEASE
     Dosage: 3 MG, QD
     Route: 065

REACTIONS (6)
  - Tremor [Unknown]
  - Disorientation [Unknown]
  - Pulse abnormal [Unknown]
  - Parkinsonian crisis [Unknown]
  - Paralysis [Unknown]
  - Thinking abnormal [Unknown]
